FAERS Safety Report 12165635 (Version 2)
Quarter: 2016Q3

REPORT INFORMATION
  Report Type: Spontaneous
  Country: GB (occurrence: GB)
  Receive Date: 20160309
  Receipt Date: 20160920
  Transmission Date: 20161109
  Serious: Yes (Other)
  Sender: FDA-Public Use
  Company Number: GB-NOVOPROD-482370

PATIENT
  Age: 79 Year
  Sex: Female

DRUGS (2)
  1. VAGIFEM [Suspect]
     Active Substance: ESTRADIOL
     Indication: BLOOD OESTROGEN DECREASED
     Dosage: 1 TAB, QD
     Route: 067
     Dates: end: 20141211
  2. VAGIFEM [Suspect]
     Active Substance: ESTRADIOL
     Dosage: 1 TAB, BIW
     Route: 067
     Dates: end: 20141211

REACTIONS (14)
  - Vein disorder [Unknown]
  - Dyspepsia [Recovered/Resolved with Sequelae]
  - Limb discomfort [Unknown]
  - Dizziness [Unknown]
  - Vulvovaginal pain [Not Recovered/Not Resolved]
  - Vaginal discharge [Recovered/Resolved with Sequelae]
  - Diarrhoea [Not Recovered/Not Resolved]
  - Vaginal haemorrhage [Recovering/Resolving]
  - Urinary tract infection [Recovered/Resolved with Sequelae]
  - Withdrawal syndrome [Unknown]
  - Erythema nodosum [Recovered/Resolved with Sequelae]
  - Arthralgia [Recovered/Resolved with Sequelae]
  - Back pain [Recovered/Resolved with Sequelae]
  - Flatulence [Recovered/Resolved with Sequelae]

NARRATIVE: CASE EVENT DATE: 20141211
